FAERS Safety Report 14187767 (Version 2)
Quarter: 2017Q4

REPORT INFORMATION
  Report Type: Report from Study
  Country: US (occurrence: US)
  Receive Date: 20171114
  Receipt Date: 20171226
  Transmission Date: 20180321
  Serious: Yes (Hospitalization)
  Sender: FDA-Public Use
  Company Number: US-BAUSCH-BL-2017-031341

PATIENT
  Age: 76 Year
  Sex: Male
  Weight: 90.8 kg

DRUGS (4)
  1. XIFAXAN [Suspect]
     Active Substance: RIFAXIMIN
     Indication: HEPATIC ENCEPHALOPATHY
     Route: 048
     Dates: start: 2015
  2. LASIX [Suspect]
     Active Substance: FUROSEMIDE
     Indication: LYMPHOEDEMA
     Route: 048
  3. LACTULOSE. [Concomitant]
     Active Substance: LACTULOSE
     Indication: PRODUCT USED FOR UNKNOWN INDICATION
     Dosage: 30 UNITS
     Route: 048
  4. ALDACTONE [Suspect]
     Active Substance: SPIRONOLACTONE
     Indication: LYMPHOEDEMA
     Route: 048

REACTIONS (1)
  - Sepsis [Recovering/Resolving]

NARRATIVE: CASE EVENT DATE: 20171106
